FAERS Safety Report 5767198-4 (Version None)
Quarter: 2008Q2

REPORT INFORMATION
  Report Type: 
  Country: None (occurrence: None)
  Receive Date: 20080612
  Receipt Date: 20080609
  Transmission Date: 20081010
  Serious: Yes (Death, Other)
  Sender: FDA-Public Use
  Company Number: US-BAYER-200823381NA

PATIENT
  Age: 60 Year
  Sex: Female

DRUGS (12)
  1. CAMPATH [Suspect]
     Indication: STEM CELL TRANSPLANT
     Route: 041
     Dates: start: 20080509, end: 20080513
  2. CLOFARABINE [Suspect]
     Indication: STEM CELL TRANSPLANT
     Route: 041
     Dates: start: 20080508, end: 20080513
  3. MELPHALAN [Suspect]
     Indication: STEM CELL TRANSPLANT
     Route: 041
     Dates: start: 20080514, end: 20080514
  4. ZOFRAN [Concomitant]
     Indication: NAUSEA
     Route: 042
     Dates: start: 20080501, end: 20080515
  5. ZOLOFT [Concomitant]
     Indication: DEPRESSION
     Route: 048
     Dates: start: 20080508, end: 20080515
  6. INDERAL [Concomitant]
     Indication: HYPERTENSION
     Route: 048
     Dates: start: 20080508, end: 20080515
  7. LASIX [Concomitant]
     Indication: FLUID OVERLOAD
     Route: 048
     Dates: start: 20080508, end: 20080516
  8. AZTREONAN [Concomitant]
     Indication: INFECTION
     Route: 042
     Dates: start: 20080515, end: 20080516
  9. ACYCLOVIR SODIUM [Concomitant]
     Indication: PROPHYLAXIS
     Route: 048
     Dates: start: 20080515, end: 20080516
  10. METHADONE HCL [Concomitant]
     Indication: PAIN
     Route: 048
     Dates: start: 20080508, end: 20080516
  11. PROGRAF [Concomitant]
     Indication: PROPHYLAXIS
     Route: 042
     Dates: start: 20080515, end: 20080516
  12. PERCOCET [Concomitant]

REACTIONS (8)
  - ABDOMINAL PAIN [None]
  - ACUTE PULMONARY OEDEMA [None]
  - BLOOD CREATININE INCREASED [None]
  - CARDIO-RESPIRATORY ARREST [None]
  - DYSPNOEA [None]
  - HYPERVOLAEMIA [None]
  - HYPOTENSION [None]
  - PAIN [None]
